FAERS Safety Report 7932307-5 (Version None)
Quarter: 2011Q4

REPORT INFORMATION
  Report Type: 
  Country: None (occurrence: None)
  Receive Date: 20111121
  Receipt Date: 20111116
  Transmission Date: 20120403
  Serious: Yes (Other)
  Sender: FDA-Public Use
  Company Number: US-TEVA-309532USA

PATIENT
  Sex: Female
  Weight: 107 kg

DRUGS (13)
  1. COPAXONE [Suspect]
     Indication: MULTIPLE SCLEROSIS
     Dosage: 20 MILLIGRAM;
     Route: 058
     Dates: start: 20090223
  2. NUVIGIL [Concomitant]
     Indication: FATIGUE
     Dosage: 250 MILLIGRAM;
  3. EZETIMIBE [Concomitant]
     Indication: BLOOD CHOLESTEROL INCREASED
     Dosage: 20 MILLIGRAM;
  4. GABAPENTIN [Concomitant]
     Dosage: 300 MILLIGRAM;
  5. OXYCODONE HCL [Concomitant]
  6. TYLOX [Concomitant]
     Dosage: 1-2 TABLETS- AS NEEDED
     Route: 048
  7. INTERFERON BETA-1A [Suspect]
     Indication: MULTIPLE SCLEROSIS
     Dates: start: 20040101, end: 20100101
  8. DULOXETINE HYDROCHLORIDE [Concomitant]
     Indication: DEPRESSION
     Dates: start: 19900101
  9. METOPROLOL TARTRATE [Concomitant]
  10. AMLODIPINE [Concomitant]
     Dosage: 5 MILLIGRAM;
  11. COLESEVELAM HYDROCHLORIDE [Concomitant]
     Indication: BLOOD CHOLESTEROL INCREASED
     Dosage: 1200 MILLIGRAM;
  12. LORAZEPAM [Concomitant]
     Dosage: 2 MILLIEQUIVALENTS;
  13. TRAZODONE HCL [Concomitant]
     Indication: SLEEP DISORDER
     Dosage: 300 MILLIGRAM;

REACTIONS (2)
  - RENAL CANCER [None]
  - CENTRAL NERVOUS SYSTEM LESION [None]
